FAERS Safety Report 25813608 (Version 1)
Quarter: 2025Q3

REPORT INFORMATION
  Report Type: Spontaneous
  Country: US (occurrence: None)
  Receive Date: 20250917
  Receipt Date: 20250917
  Transmission Date: 20251020
  Serious: Yes (Hospitalization)
  Sender: FDA-CTU
  Company Number: None

PATIENT
  Age: 77 Year
  Sex: Female
  Weight: 64.41 kg

DRUGS (1)
  1. TYENNE [Suspect]
     Active Substance: TOCILIZUMAB-AAZG
     Indication: Giant cell arteritis
     Dosage: INJECT 162MG  (1 PEN) SUBCUTANEOUSLY ONCE A  WEEK AS DIRECTED.
     Route: 058

REACTIONS (1)
  - Mental disorder [None]

NARRATIVE: CASE EVENT DATE: 20250912
